FAERS Safety Report 21218813 (Version 1)
Quarter: 2022Q3

REPORT INFORMATION
  Report Type: Spontaneous
  Country: ZA (occurrence: ZA)
  Receive Date: 20220816
  Receipt Date: 20220816
  Transmission Date: 20221026
  Serious: Yes (Hospitalization)
  Sender: FDA-Public Use
  Company Number: ZA-NOVOPROD-946189

PATIENT
  Sex: Female

DRUGS (1)
  1. INSULIN ASPART [Suspect]
     Active Substance: INSULIN ASPART
     Indication: Product used for unknown indication
     Dosage: 10 IU, BID
     Dates: start: 20220623

REACTIONS (3)
  - Blood pressure decreased [Unknown]
  - Blood glucose decreased [Unknown]
  - Anxiety [Unknown]

NARRATIVE: CASE EVENT DATE: 20220724
